FAERS Safety Report 19435079 (Version 1)
Quarter: 2021Q2

REPORT INFORMATION
  Report Type: Spontaneous
  Country: US (occurrence: US)
  Receive Date: 20210617
  Receipt Date: 20210617
  Transmission Date: 20210717
  Serious: No
  Sender: FDA-Public Use
  Company Number: US-ASTRAZENECA-2021A458928

PATIENT
  Age: 578 Month
  Sex: Female

DRUGS (3)
  1. PULMICORT RESPULES [Suspect]
     Active Substance: BUDESONIDE
     Route: 055
  2. BUDESONIDE AND FORMOTEROL FUMARATE [Suspect]
     Active Substance: BUDESONIDE\FORMOTEROL FUMARATE
     Indication: ASTHMA
     Route: 055
  3. ALBUTEROL. [Suspect]
     Active Substance: ALBUTEROL
     Route: 055

REACTIONS (10)
  - Feeling abnormal [Recovered/Resolved]
  - Nervousness [Unknown]
  - Tachyphrenia [Not Recovered/Not Resolved]
  - Intentional device misuse [Unknown]
  - Drug delivery system issue [Unknown]
  - Palpitations [Unknown]
  - Intentional product misuse [Unknown]
  - Drug ineffective [Not Recovered/Not Resolved]
  - Blood pressure increased [Unknown]
  - Myalgia [Unknown]

NARRATIVE: CASE EVENT DATE: 20210519
